FAERS Safety Report 5145219-X (Version None)
Quarter: 2006Q4

REPORT INFORMATION
  Report Type: 
  Country: None (occurrence: None)
  Receive Date: 20061107
  Receipt Date: 20061103
  Transmission Date: 20070319
  Serious: Yes (Death)
  Sender: FDA-Public Use
  Company Number: US-BRISTOL-MYERS SQUIBB COMPANY-13566518

PATIENT
  Age: 77 Year
  Sex: Female
  Weight: 68 kg

DRUGS (1)
  1. MEGACE [Suspect]
     Route: 048

REACTIONS (2)
  - DEMENTIA [None]
  - GENERAL PHYSICAL HEALTH DETERIORATION [None]
